FAERS Safety Report 10178012 (Version 1)
Quarter: 2014Q2

REPORT INFORMATION
  Report Type: Spontaneous
  Country: CA (occurrence: CA)
  Receive Date: 20140517
  Receipt Date: 20140517
  Transmission Date: 20141212
  Serious: Yes (Hospitalization, Disabling)
  Sender: FDA-Public Use
  Company Number: CA-ROCHE-1400769

PATIENT
  Age: 65 Year
  Sex: Female
  Weight: 79 kg

DRUGS (12)
  1. RITUXAN [Suspect]
     Indication: PRODUCT USED FOR UNKNOWN INDICATION
     Route: 042
  2. ACTONEL [Concomitant]
     Route: 065
  3. CIPRALEX [Concomitant]
     Route: 065
  4. CLONIDINE [Concomitant]
     Route: 065
  5. CRESTOR [Concomitant]
  6. CYCLOPHOSPHAMIDE [Concomitant]
     Route: 065
  7. D-TABS [Concomitant]
     Route: 065
  8. DOMPERIDONE [Concomitant]
     Route: 065
  9. MIRTAZAPINE [Concomitant]
     Route: 065
  10. NEXIUM [Concomitant]
     Route: 065
  11. PREDNISONE [Concomitant]
     Route: 065
  12. SUPEUDOL [Concomitant]
     Route: 065

REACTIONS (2)
  - Arthralgia [Unknown]
  - Polyarthritis [Unknown]
